FAERS Safety Report 15322180 (Version 1)
Quarter: 2018Q3

REPORT INFORMATION
  Report Type: Report from Study
  Country: US (occurrence: US)
  Receive Date: 20180827
  Receipt Date: 20180827
  Transmission Date: 20181010
  Serious: Yes (Other)
  Sender: FDA-Public Use
  Company Number: US-BAYER-2018-143863

PATIENT
  Age: 81 Year
  Sex: Female
  Weight: 70.3 kg

DRUGS (5)
  1. ADEMPAS [Suspect]
     Active Substance: RIOCIGUAT
     Indication: PULMONARY ARTERIAL HYPERTENSION
     Dosage: 2.5 MG, TID
     Route: 048
  2. UPTRAVI [Concomitant]
     Active Substance: SELEXIPAG
     Dosage: UNK
  3. LETAIRIS [Concomitant]
     Active Substance: AMBRISENTAN
     Dosage: UNK
  4. ADEMPAS [Suspect]
     Active Substance: RIOCIGUAT
     Indication: PULMONARY ARTERIAL HYPERTENSION
     Dosage: UNK
     Dates: start: 20180612
  5. ADEMPAS [Suspect]
     Active Substance: RIOCIGUAT
     Indication: PULMONARY ARTERIAL HYPERTENSION
     Dosage: 2.0 MG, TID
     Route: 048

REACTIONS (16)
  - Arthralgia [None]
  - Surgery [None]
  - Headache [None]
  - Pain in extremity [None]
  - Nausea [None]
  - Myalgia [None]
  - Decreased appetite [None]
  - Post procedural swelling [None]
  - Neck pain [None]
  - Musculoskeletal pain [None]
  - Pain in jaw [None]
  - Vomiting [None]
  - Hot flush [None]
  - Peripheral swelling [None]
  - Candida infection [None]
  - Dizziness [None]

NARRATIVE: CASE EVENT DATE: 2018
